FAERS Safety Report 26139481 (Version 1)
Quarter: 2025Q4

REPORT INFORMATION
  Report Type: Spontaneous
  Country: US (occurrence: US)
  Receive Date: 20251210
  Receipt Date: 20251210
  Transmission Date: 20260118
  Serious: Yes (Hospitalization)
  Sender: ACCORD
  Company Number: US-MLMSERVICE-20251121-PI722450-00185-1

PATIENT
  Age: 57 Year
  Sex: Male

DRUGS (1)
  1. ITRACONAZOLE [Suspect]
     Active Substance: ITRACONAZOLE
     Indication: Pulmonary histoplasmosis
     Route: 048

REACTIONS (2)
  - Gastrointestinal disorder [Unknown]
  - Apparent mineralocorticoid excess [Recovered/Resolved]
